FAERS Safety Report 7282765-7 (Version None)
Quarter: 2011Q1

REPORT INFORMATION
  Report Type: 
  Country: None (occurrence: None)
  Receive Date: 20110209
  Receipt Date: 20101029
  Transmission Date: 20110831
  Serious: Yes (Hospitalization)
  Sender: FDA-Public Use
  Company Number: US-BAYER-201018569NA

PATIENT
  Sex: Female
  Weight: 79.365 kg

DRUGS (11)
  1. UNCODEABLE ^UNCLASSIFIABLE^ [Concomitant]
  2. OXYCODONE HCL AND ACETAMINOPHEN [Concomitant]
  3. MICARDIS [Concomitant]
     Indication: HYPERTENSION
     Dosage: 40 MG, UNK
  4. VALTREX [Concomitant]
     Indication: HERPES ZOSTER
  5. FLEXERIL [Concomitant]
  6. YASMIN [Suspect]
     Indication: PRODUCT USED FOR UNKNOWN INDICATION
     Dosage: UNK
     Route: 048
     Dates: start: 20040101, end: 20080101
  7. YAZ [Suspect]
     Indication: PRODUCT USED FOR UNKNOWN INDICATION
     Dosage: UNK UNK, UNK
     Route: 048
  8. ADIPEX [Concomitant]
     Dosage: UNK
     Dates: start: 20080707
  9. PHENTERMINE [Concomitant]
  10. ONDANSERTRON HCL [Concomitant]
     Dosage: 4 MG, UNK
  11. ZITHROMAX [Concomitant]
     Dosage: UNK
     Dates: start: 20080124

REACTIONS (6)
  - CHOLECYSTITIS CHRONIC [None]
  - PAIN [None]
  - STRESS [None]
  - BILIARY DYSKINESIA [None]
  - CHOLELITHIASIS [None]
  - CHOLECYSTITIS ACUTE [None]
